FAERS Safety Report 19041981 (Version 3)
Quarter: 2021Q2

REPORT INFORMATION
  Report Type: Report from Study
  Country: NL (occurrence: NL)
  Receive Date: 20210322
  Receipt Date: 20210414
  Transmission Date: 20210717
  Serious: Yes (Hospitalization)
  Sender: FDA-Public Use
  Company Number: NL-IMMUNOMEDICS, INC.-2020IMMU000547

PATIENT
  Age: 78 Year
  Sex: Female
  Weight: 67.3 kg

DRUGS (12)
  1. SACITUZUMAB GOVITECAN. [Suspect]
     Active Substance: SACITUZUMAB GOVITECAN
     Dosage: 7.5 MG/KG (505 MG; DOSE REDUCED BY 25%) DAYS 1 AND 8 OF 21?DAYS CYCLE
     Route: 042
     Dates: start: 20200916, end: 20200916
  2. GRANISETRON [Concomitant]
     Active Substance: GRANISETRON
     Indication: PROPHYLAXIS OF NAUSEA AND VOMITING
     Dosage: 1 MG, BID
     Route: 065
     Dates: start: 20200824, end: 20200824
  3. COLECALCIFEROL [Concomitant]
     Active Substance: CHOLECALCIFEROL
     Indication: METASTASES TO BONE
     Dosage: 800 IU, QD
     Route: 048
     Dates: start: 20200720
  4. CARBASALATE CALCIUM [Concomitant]
     Active Substance: CARBASPIRIN CALCIUM
     Indication: TRANSIENT ISCHAEMIC ATTACK
     Dosage: 100 MG, QD
     Route: 048
     Dates: start: 20200720
  5. LOPERAMIDE [Concomitant]
     Active Substance: LOPERAMIDE
     Indication: PROPHYLAXIS AGAINST DIARRHOEA
     Dosage: 2 MG, PRN (6X/DAY; REPEAT AFTER 2H)
     Route: 048
     Dates: start: 20200819
  6. SACITUZUMAB GOVITECAN. [Suspect]
     Active Substance: SACITUZUMAB GOVITECAN
     Indication: BREAST CANCER METASTATIC
     Dosage: 10 MG/KG (673 MG) DAYS 1 AND 8 OF 21?DAYS CYCLE
     Route: 042
     Dates: start: 20200824, end: 20200824
  7. CLEMASTINE [Concomitant]
     Active Substance: CLEMASTINE
     Indication: ALLERGY PROPHYLAXIS
     Dosage: 2 MG, QD
     Route: 065
     Dates: start: 20200824, end: 20200824
  8. SACITUZUMAB GOVITECAN. [Suspect]
     Active Substance: SACITUZUMAB GOVITECAN
     Dosage: 7.5 MG/KG (505 MG) DAYS 1 AND 8 OF 21?DAYS CYCLE
     Route: 042
     Dates: start: 20200923, end: 20200923
  9. SACITUZUMAB GOVITECAN. [Suspect]
     Active Substance: SACITUZUMAB GOVITECAN
     Dosage: 5 MG/KG (DOSE REDUCED BY 50%) DAYS 1 AND 8 OF 21?DAYS CYCLE
     Route: 042
     Dates: start: 20201014, end: 20201014
  10. DEXAMETHASONE. [Concomitant]
     Active Substance: DEXAMETHASONE
     Indication: PROPHYLAXIS OF NAUSEA AND VOMITING
     Dosage: 4 MG, QD
     Route: 065
     Dates: start: 20200824, end: 20200824
  11. PANTOPRAZOLE [Concomitant]
     Active Substance: PANTOPRAZOLE
     Indication: PAIN PROPHYLAXIS
     Dosage: 40 MG, QD
     Route: 048
     Dates: start: 20200720
  12. PANTOPRAZOLE [Concomitant]
     Active Substance: PANTOPRAZOLE
     Indication: ABDOMINAL PAIN UPPER

REACTIONS (2)
  - Sepsis [Recovered/Resolved]
  - Febrile neutropenia [Recovered/Resolved]

NARRATIVE: CASE EVENT DATE: 20200902
